FAERS Safety Report 12183215 (Version 1)
Quarter: 2016Q1

REPORT INFORMATION
  Report Type: Spontaneous
  Country: US (occurrence: None)
  Receive Date: 20160315
  Receipt Date: 20160315
  Transmission Date: 20160526
  Serious: Yes (Disabling)
  Sender: FDA-Public Use
  Company Number: None

PATIENT
  Age: 67 Year
  Sex: Female
  Weight: 63.5 kg

DRUGS (3)
  1. MULTI VITAMIN [Concomitant]
     Active Substance: VITAMINS
  2. CURCUMIN [Concomitant]
     Active Substance: CURCUMIN
  3. OTEZLA [Suspect]
     Active Substance: APREMILAST
     Indication: PROSTATIC SPECIFIC ANTIGEN
     Dosage: 02/01/2015 - 12/01/2015
     Route: 048

REACTIONS (4)
  - Skin fissures [None]
  - Skin discolouration [None]
  - Scar [None]
  - Contusion [None]
